FAERS Safety Report 13181932 (Version 3)
Quarter: 2017Q3

REPORT INFORMATION
  Report Type: Spontaneous
  Country: US (occurrence: US)
  Receive Date: 20170202
  Receipt Date: 20170724
  Transmission Date: 20171127
  Serious: No
  Sender: FDA-Public Use
  Company Number: US-IMPAX LABORATORIES, INC-2016-IPXL-02324

PATIENT
  Age: 70 Year
  Sex: Male
  Weight: 62 kg

DRUGS (20)
  1. OXYGEN. [Concomitant]
     Active Substance: OXYGEN
     Indication: PULMONARY FIBROSIS
     Dosage: LONG TIME NOW
     Route: 065
     Dates: start: 201602
  2. MYRBETRIQ [Concomitant]
     Active Substance: MIRABEGRON
     Indication: MICTURITION URGENCY
     Dosage: 25 MG, 1 /DAY
     Route: 065
  3. VITAMIN C [Concomitant]
     Active Substance: ASCORBIC ACID
     Indication: PRODUCT USED FOR UNKNOWN INDICATION
     Dosage: LONG TIME NOW, UNKNOWN
     Route: 065
  4. RYTARY [Suspect]
     Active Substance: CARBIDOPA\LEVODOPA
     Indication: PARKINSON^S DISEASE
     Dosage: 48.75/195MG, 14 CAPSULES DAILY
     Route: 048
     Dates: start: 2016
  5. ACYCLOVIR. [Concomitant]
     Active Substance: ACYCLOVIR
     Indication: HERPES ZOSTER
     Dosage: 800 MG, 2 /DAY
     Route: 065
  6. VITAMIN E [Concomitant]
     Active Substance: .ALPHA.-TOCOPHEROL
     Indication: PRODUCT USED FOR UNKNOWN INDICATION
     Dosage: LONG TIME NOW, UNKNOWN
     Route: 065
  7. CARBIDOPA/LEVODOPA [Suspect]
     Active Substance: CARBIDOPA\LEVODOPA
     Indication: PARKINSON^S DISEASE
     Dosage: 25/100 MG, 5 TIMES A DAY AS NEEDED
     Route: 065
     Dates: start: 20161119
  8. KIRKLAND SIGNATURE ALLERCLEAR [Concomitant]
     Active Substance: LORATADINE
     Indication: HYPERSENSITIVITY
     Dosage: 10 MG, 1 /DAY
     Route: 065
  9. ESBRIET [Concomitant]
     Active Substance: PIRFENIDONE
     Indication: PULMONARY FIBROSIS
     Dosage: 267 MG, 6 PILLS A DAY
     Route: 065
  10. PREDNISONE. [Concomitant]
     Active Substance: PREDNISONE
     Indication: PROPHYLACTIC CHEMOTHERAPY
     Dosage: 5 MG, 1 /DAY
     Route: 065
  11. MIRTAZAPINE. [Concomitant]
     Active Substance: MIRTAZAPINE
     Indication: WEIGHT DECREASED
  12. CALCIUM [Concomitant]
     Active Substance: CALCIUM
     Indication: PRODUCT USED FOR UNKNOWN INDICATION
     Dosage: LONG TIME NOW, UNKNOWN
     Route: 065
  13. RYTARY [Suspect]
     Active Substance: CARBIDOPA\LEVODOPA
     Dosage: 48.75/195MG, 3 CAPSULES EVERY 4 HOUR (12 CAPSULE DAILY)
     Route: 048
     Dates: start: 20161119
  14. FLUTICASONE. [Concomitant]
     Active Substance: FLUTICASONE
     Indication: NASAL CONGESTION
     Dosage: 50 ?G, 2 PUFF EACH NOSTRIL ONCE A DAY
     Route: 065
  15. MIRTAZAPINE. [Concomitant]
     Active Substance: MIRTAZAPINE
     Indication: INSOMNIA
  16. OMEPRAZOLE. [Concomitant]
     Active Substance: OMEPRAZOLE
     Indication: GASTROOESOPHAGEAL REFLUX DISEASE
     Dosage: 20 MG, 1 /DAY
     Route: 065
  17. LEVOTHYROXINE. [Concomitant]
     Active Substance: LEVOTHYROXINE
     Indication: HYPOTHYROIDISM
     Dosage: 125 ?G ON MONDAY, TUESDAY, WEDNESDAY, FRIDAY AND SATURDAY
     Route: 065
  18. MIRTAZAPINE. [Concomitant]
     Active Substance: MIRTAZAPINE
     Indication: DEPRESSION
     Dosage: 15 MG, 1 /DAY
     Route: 065
  19. MULTIVITAMIN [Concomitant]
     Active Substance: VITAMINS
     Indication: PRODUCT USED FOR UNKNOWN INDICATION
     Dosage: LONG TIME NOW, UNKNOWN
     Route: 065
  20. VITAMIN D [Concomitant]
     Active Substance: CHOLECALCIFEROL
     Indication: PRODUCT USED FOR UNKNOWN INDICATION
     Dosage: LONG TIME NOW, UNKNOWN
     Route: 065

REACTIONS (5)
  - Tremor [Unknown]
  - Fatigue [Unknown]
  - Prescribed overdose [Unknown]
  - Drug effect incomplete [Unknown]
  - Non-24-hour sleep-wake disorder [Recovered/Resolved with Sequelae]

NARRATIVE: CASE EVENT DATE: 20161103
